FAERS Safety Report 8336968-0 (Version None)
Quarter: 2012Q2

REPORT INFORMATION
  Report Type: 
  Country: None (occurrence: None)
  Receive Date: 20120504
  Receipt Date: 20120425
  Transmission Date: 20120825
  Serious: Yes (Life-Threatening)
  Sender: FDA-Public Use
  Company Number: FR-SANOFI-AVENTIS-2012SA029745

PATIENT

DRUGS (4)
  1. TEGRETOL [Suspect]
     Route: 065
  2. ZOLPIDEM TARTRATE [Suspect]
     Route: 065
  3. BACLOFEN [Suspect]
     Route: 065
  4. TRANXENE [Suspect]
     Route: 065

REACTIONS (2)
  - SOMNOLENCE [None]
  - ASPIRATION [None]
